FAERS Safety Report 9853274 (Version 2)
Quarter: 2014Q1

REPORT INFORMATION
  Report Type: Spontaneous
  Country: US (occurrence: US)
  Receive Date: 20140129
  Receipt Date: 20140129
  Transmission Date: 20141002
  Serious: No
  Sender: FDA-Public Use
  Company Number: US-MALLINCKRODT-T201304169

PATIENT
  Age: 28 Year
  Sex: Male
  Weight: 70.3 kg

DRUGS (3)
  1. DEXTROAMPHETAMINE SULFATE EXTENDED-RELEASE [Suspect]
     Indication: ATTENTION DEFICIT/HYPERACTIVITY DISORDER
     Dosage: 10 MG, BID
     Route: 048
     Dates: start: 201308, end: 201308
  2. MAGNESIUM [Concomitant]
     Indication: POTENTIATING DRUG INTERACTION
     Dosage: 500 MG, QD
     Route: 048
  3. DEXTROAMPHETAMINE                  /00016601/ [Concomitant]
     Indication: ATTENTION DEFICIT/HYPERACTIVITY DISORDER
     Dosage: UNK

REACTIONS (2)
  - Anxiety [Recovered/Resolved]
  - Drug effect decreased [Recovered/Resolved]
